FAERS Safety Report 12174531 (Version 14)
Quarter: 2023Q1

REPORT INFORMATION
  Report Type: Report from Study
  Country: CH (occurrence: CH)
  Receive Date: 20160311
  Receipt Date: 20230222
  Transmission Date: 20230418
  Serious: Yes (Congenital Anomaly)
  Sender: FDA-Public Use
  Company Number: PHHY2016CH030679

PATIENT
  Sex: Female
  Weight: 2.7 kg

DRUGS (12)
  1. GILENYA [Suspect]
     Active Substance: FINGOLIMOD HYDROCHLORIDE
     Indication: Foetal exposure during pregnancy
     Dosage: MATERNAL DOSE: 0.5 MG QD
     Route: 064
     Dates: start: 201312, end: 20150530
  2. VITAMIN D [Concomitant]
     Active Substance: VITAMIN D NOS
     Indication: Vitamin supplementation
     Dosage: 200 IE, QD
     Route: 048
     Dates: start: 20151117
  3. MEASLES-MUMPS-RUBELLA VIRUS VACCINE, LIVE [Concomitant]
     Active Substance: MEASLES-MUMPS-RUBELLA VIRUS VACCINE, LIVE
     Indication: Measles immunisation
     Dosage: ONCE
     Route: 030
     Dates: start: 20160119, end: 20160119
  4. MEASLES-MUMPS-RUBELLA VIRUS VACCINE, LIVE [Concomitant]
     Active Substance: MEASLES-MUMPS-RUBELLA VIRUS VACCINE, LIVE
     Indication: Mumps immunisation
  5. MEASLES-MUMPS-RUBELLA VIRUS VACCINE, LIVE [Concomitant]
     Active Substance: MEASLES-MUMPS-RUBELLA VIRUS VACCINE, LIVE
     Indication: Rubella immunisation
  6. PERTUSSIS VACCINE [Concomitant]
     Active Substance: PERTUSSIS VACCINE
     Indication: Pertussis immunisation
     Dosage: ONCE
     Route: 030
     Dates: start: 20160119, end: 20160119
  7. PERTUSSIS VACCINE [Concomitant]
     Active Substance: PERTUSSIS VACCINE
     Dosage: ONCE
     Route: 030
     Dates: start: 20160524, end: 20160524
  8. POLIOMYELITIS VACCINE NOS [Concomitant]
     Active Substance: POLIOMYELITIS VACCINE
     Indication: Polio immunisation
     Dosage: ONCE
     Route: 030
     Dates: start: 20160119, end: 20160119
  9. PNEUMOCOCCAL VACCINE POLYVALENT NOS [Concomitant]
     Active Substance: PNEUMOCOCCAL VACCINE POLYVALENT
     Indication: Pneumococcal immunisation
     Dosage: ONCE
     Route: 030
     Dates: start: 20160119, end: 20160119
  10. HAEMOPHILUS INFLUENZA [Concomitant]
     Indication: Immunisation
     Dosage: ONCE
     Route: 030
     Dates: start: 20160119, end: 20160119
  11. TETANUS TOXOID ADSORBED (VACCINE) [Concomitant]
     Active Substance: CLOSTRIDIUM TETANI TOXOID ANTIGEN (FORMALDEHYDE INACTIVATED)
     Indication: Tetanus immunisation
     Dosage: ONCE
     Route: 030
     Dates: start: 20160119, end: 20160119
  12. TETANUS TOXOID ADSORBED (VACCINE) [Concomitant]
     Active Substance: CLOSTRIDIUM TETANI TOXOID ANTIGEN (FORMALDEHYDE INACTIVATED)
     Dosage: ONCE
     Route: 030
     Dates: start: 20160524, end: 20160524

REACTIONS (5)
  - Ventricular septal defect [Unknown]
  - Chromosomal deletion [Unknown]
  - Atrial septal defect [Unknown]
  - Otitis media [Recovered/Resolved]
  - Foetal exposure during pregnancy [Unknown]

NARRATIVE: CASE EVENT DATE: 20151117
